FAERS Safety Report 19599862 (Version 1)
Quarter: 2021Q3

REPORT INFORMATION
  Report Type: Spontaneous
  Country: US (occurrence: US)
  Receive Date: 20210723
  Receipt Date: 20210723
  Transmission Date: 20211014
  Serious: Yes (Hospitalization)
  Sender: FDA-Public Use
  Company Number: None

PATIENT
  Age: 81 Year
  Sex: Female

DRUGS (11)
  1. LANTUS [Concomitant]
     Active Substance: INSULIN GLARGINE
     Dates: start: 20210422
  2. ATORVASTATIN [Concomitant]
     Active Substance: ATORVASTATIN
     Dates: start: 20210507
  3. TADALAFIL TAB [Suspect]
     Active Substance: TADALAFIL
     Indication: PULMONARY ARTERIAL HYPERTENSION
     Route: 048
     Dates: start: 20210304
  4. ELIQUIS [Concomitant]
     Active Substance: APIXABAN
     Dates: start: 20210601
  5. ACCUCHEK [Concomitant]
     Dates: start: 20210609
  6. AMLODIPINE [Concomitant]
     Active Substance: AMLODIPINE BESYLATE
     Dates: start: 20201023
  7. GLIPIZIDE. [Concomitant]
     Active Substance: GLIPIZIDE
     Dates: start: 20201023
  8. INSULIN [Concomitant]
     Active Substance: INSULIN NOS
     Dates: start: 20210421
  9. POT CL [Concomitant]
     Dates: start: 20210530
  10. TORSEMIDE. [Concomitant]
     Active Substance: TORSEMIDE
     Dates: start: 20210601
  11. SOFTCLIX [Concomitant]
     Dates: start: 20210610

REACTIONS (1)
  - Fluid retention [None]

NARRATIVE: CASE EVENT DATE: 20210714
